FAERS Safety Report 4618920-1 (Version None)
Quarter: 2005Q2

REPORT INFORMATION
  Report Type: 
  Country: None (occurrence: None)
  Receive Date: 20050310
  Receipt Date: 20041215
  Transmission Date: 20051028
  Serious: Yes (Hospitalization)
  Sender: FDA-Public Use
  Company Number: F03200400124

PATIENT
  Age: 62 Year
  Sex: Male

DRUGS (4)
  1. ELOXATIN [Suspect]
     Indication: COLORECTAL CANCER
     Dosage: ^164 MG 1/1 CYCLE^ - INTRAVENOUS NOS
     Route: 042
     Dates: start: 20041124, end: 20041124
  2. CETUXIMAB - SOLUTION [Suspect]
     Indication: COLORECTAL CANCER
     Dosage: ^1254 MG 1/1 TOTAL^ - INTRAVENOUS NOS
     Route: 042
     Dates: start: 20041117, end: 20041124
  3. FLUOROURACIL [Suspect]
     Indication: COLORECTAL CANCER
     Dosage: ^5404 MG 1/1 CYCLE^ - INTRAVENOUS NOS
     Route: 042
     Dates: start: 20041117, end: 20041117
  4. LEUCOVORIN CALCIUM [Suspect]
     Indication: COLORECTAL CANCER
     Dosage: ^772 MG 1/1 CYCLE^ - INTRAVENOUS NOS
     Route: 042
     Dates: start: 20041117, end: 20041117

REACTIONS (3)
  - ABDOMINAL PAIN [None]
  - CHOLECYSTITIS [None]
  - RASH [None]
